FAERS Safety Report 20818393 (Version 2)
Quarter: 2022Q2

REPORT INFORMATION
  Report Type: Report from Study
  Country: IT (occurrence: IT)
  Receive Date: 20220512
  Receipt Date: 20220525
  Transmission Date: 20220721
  Serious: Yes (Hospitalization)
  Sender: FDA-Public Use
  Company Number: IT-ROCHE-3006813

PATIENT
  Age: 57 Year
  Sex: Female
  Weight: 118 kg

DRUGS (19)
  1. PREDNISONE [Suspect]
     Active Substance: PREDNISONE
     Indication: Non-Hodgkin^s lymphoma
     Dosage: 100 MILLIGRAM, MOST RECENT DOSE OF PREDNISONE WAS ADMIN ON 21/AUG/2020 PRIOR TO AE/SAE.
     Route: 048
     Dates: start: 20200417
  2. PREDNISONE [Suspect]
     Active Substance: PREDNISONE
     Indication: Diffuse large B-cell lymphoma
  3. DOXORUBICIN [Suspect]
     Active Substance: DOXORUBICIN
     Indication: Non-Hodgkin^s lymphoma
     Dosage: 90 MG/M2 Q3W, MOST RECENT DOSE ADMIN ON 17/AUG/2020 AT 03:20 TO 03:25 PM PRIOR TO AE/SAE
     Route: 042
     Dates: start: 20200416
  4. DOXORUBICIN [Suspect]
     Active Substance: DOXORUBICIN
     Indication: Diffuse large B-cell lymphoma
  5. CYCLOPHOSPHAMIDE [Suspect]
     Active Substance: CYCLOPHOSPHAMIDE
     Indication: Non-Hodgkin^s lymphoma
     Dosage: 1350 MG/M2 Q3W, TOTAL VOL 100 ML RECENT DOSE ON 17-08-18 AT 03:28 PM TO 03:43 PM PRIOR TO AE/SAE
     Route: 042
     Dates: start: 20200416
  6. CYCLOPHOSPHAMIDE [Suspect]
     Active Substance: CYCLOPHOSPHAMIDE
     Indication: Diffuse large B-cell lymphoma
  7. VINCRISTINE [Suspect]
     Active Substance: VINCRISTINE
     Indication: Diffuse large B-cell lymphoma
     Dosage: 2 MG/SQ. METER,Q3W TOTAL VOL 50 ML RECENT DOSE ON 17-08-20 AT 03:10 PM TO 03:15 PM PRIOR TO AE/SAE
     Route: 042
     Dates: start: 20200416
  8. VINCRISTINE [Suspect]
     Active Substance: VINCRISTINE
     Indication: Non-Hodgkin^s lymphoma
  9. METHYLPREDNISOLONE [Suspect]
     Active Substance: METHYLPREDNISOLONE
     Indication: Non-Hodgkin^s lymphoma
     Dosage: 100 MILLIGRAM, MOST RECENT DOSE ADMIN ON 17/AUG/2020 (80 MG) PRIOR TO AE/SAE
     Route: 048
     Dates: start: 20200416
  10. METHYLPREDNISOLONE [Suspect]
     Active Substance: METHYLPREDNISOLONE
     Indication: Diffuse large B-cell lymphoma
  11. RITUXIMAB [Suspect]
     Active Substance: RITUXIMAB
     Indication: Diffuse large B-cell lymphoma
     Dosage: 828 MG/M2 Q3W RECENT DOSE ON 17-08-20 AT 11:49 AM WHICH ENDED ON 02:40 PM PRIOR TO AE/SAE
     Route: 042
     Dates: start: 20200506
  12. RITUXIMAB [Suspect]
     Active Substance: RITUXIMAB
     Indication: Non-Hodgkin^s lymphoma
  13. OBINUTUZUMAB [Suspect]
     Active Substance: OBINUTUZUMAB
     Indication: Diffuse large B-cell lymphoma
     Dosage: 1000 MG MOST RECENT DOSE OBINUTUZUMAB ADMIN ON 16-04-20 AT 09:29 AM END 02:14 PM PRIOR TO AE/SAE
     Route: 042
     Dates: start: 20200416
  14. OBINUTUZUMAB [Suspect]
     Active Substance: OBINUTUZUMAB
     Indication: Non-Hodgkin^s lymphoma
     Dosage: UNK
  15. OMEPRAZOLE [Concomitant]
     Active Substance: OMEPRAZOLE
     Dosage: UNK
     Dates: start: 20210111
  16. BACTRIM [Concomitant]
     Active Substance: SULFAMETHOXAZOLE\TRIMETHOPRIM
     Dosage: UNK
     Dates: start: 20200331
  17. GLOFITAMAB [Concomitant]
     Active Substance: GLOFITAMAB
     Indication: Non-Hodgkin^s lymphoma
     Dosage: 2.5 MG Q3W RECENT DOSE 27-10-21 AT 12:33 PM PRIOR TO AE/SAE DOSE LAST STUDY DRUG PRIOR SAE 10 MG
     Route: 042
     Dates: start: 20200513
  18. GLOFITAMAB [Concomitant]
     Active Substance: GLOFITAMAB
     Indication: Diffuse large B-cell lymphoma
  19. ACYCLOVIR [Concomitant]
     Active Substance: ACYCLOVIR
     Dosage: UNK
     Dates: start: 20200331

REACTIONS (1)
  - COVID-19 pneumonia [Not Recovered/Not Resolved]

NARRATIVE: CASE EVENT DATE: 20220119
